FAERS Safety Report 4426509-2 (Version None)
Quarter: 2004Q3

REPORT INFORMATION
  Report Type: 
  Country: None (occurrence: None)
  Receive Date: 20040812
  Receipt Date: 20040812
  Transmission Date: 20050211
  Serious: No
  Sender: FDA-Public Use
  Company Number: None

PATIENT
  Age: 73 Year
  Sex: Female
  Weight: 54.9 kg

DRUGS (9)
  1. GATIFLOXACIN [Suspect]
     Indication: ENDOCARDITIS
     Dosage: 200 MG QD   INTRAVENOUS
     Route: 042
  2. GATIFLOXACIN [Suspect]
     Indication: ULCER
     Dosage: 200 MG QD   INTRAVENOUS
     Route: 042
  3. GATIFLOXACIN [Suspect]
     Indication: URINARY TRACT INFECTION
     Dosage: 200 MG QD   INTRAVENOUS
     Route: 042
  4. ACETAMINOPHEN [Concomitant]
  5. DONEPEZIL HCL [Concomitant]
  6. ENOXAPARIN SODIUM [Concomitant]
  7. QUETIAPINE [Concomitant]
  8. KCL TAB [Concomitant]
  9. VANCOMYCIN [Concomitant]

REACTIONS (1)
  - HYPERGLYCAEMIA [None]
